FAERS Safety Report 17099966 (Version 1)
Quarter: 2020Q3

REPORT INFORMATION
  Report Type: Report from Study
  Country: GB (occurrence: GB)
  Receive Date: 20191202
  Receipt Date: 20191202
  Transmission Date: 20201104
  Serious: Yes (Hospitalization)
  Sender: FDA-Public Use
  Company Number: GB-PFIZER INC-2019506734

PATIENT
  Age: 75 Year
  Sex: Female
  Weight: 56 kg

DRUGS (3)
  1. NUMIDARGISTAT. [Suspect]
     Active Substance: NUMIDARGISTAT
     Indication: OVARIAN CANCER
     Dosage: 100 MG, 2X/DAY
     Route: 048
     Dates: start: 20190404, end: 20191023
  2. CISPLATIN. [Suspect]
     Active Substance: CISPLATIN
     Indication: OVARIAN CANCER
     Dosage: 30 MG, (D1+8 OF 3W CYCLE)
     Route: 042
     Dates: start: 20190404, end: 20191018
  3. GEMCITABINE HYDROCHLORIDE. [Suspect]
     Active Substance: GEMCITABINE HYDROCHLORIDE
     Indication: OVARIAN CANCER
     Dosage: 1000 MG/M2, (912 MG D1+8 Q3W CYCLE)
     Route: 042
     Dates: start: 20190404, end: 20191018

REACTIONS (1)
  - Gastritis [Recovering/Resolving]

NARRATIVE: CASE EVENT DATE: 20191022
